FAERS Safety Report 17374858 (Version 2)
Quarter: 2020Q1

REPORT INFORMATION
  Report Type: Spontaneous
  Country: US (occurrence: US)
  Receive Date: 20200205
  Receipt Date: 20200306
  Transmission Date: 20200409
  Serious: No
  Sender: FDA-Public Use
  Company Number: US-NXDC-GLE-0004-2020

PATIENT
  Age: 60 Year
  Sex: Female
  Weight: 96 kg

DRUGS (35)
  1. FISH OIL [Concomitant]
     Active Substance: FISH OIL
  2. NAMENDA [Concomitant]
     Active Substance: MEMANTINE HYDROCHLORIDE
  3. BACITRACIN. [Concomitant]
     Active Substance: BACITRACIN
  4. NEOSTIGMINE. [Concomitant]
     Active Substance: NEOSTIGMINE METHYLSULFATE
     Indication: ANAESTHESIA
  5. SUCCINYLCHOLINE [Concomitant]
     Active Substance: SUCCINYLCHOLINE
     Indication: ANAESTHESIA
  6. PROMETRIUM [Concomitant]
     Active Substance: PROGESTERONE
  7. PHENYLEPHRINE [Concomitant]
     Active Substance: PHENYLEPHRINE HYDROCHLORIDE
     Indication: ANAESTHESIA
  8. COMPAZINE [Concomitant]
     Active Substance: PROCHLORPERAZINE MALEATE
  9. IMITREX [Concomitant]
     Active Substance: SUMATRIPTAN SUCCINATE
  10. BACITRACIN. [Concomitant]
     Active Substance: BACITRACIN
  11. FAMOTIDINE. [Concomitant]
     Active Substance: FAMOTIDINE
     Indication: ANAESTHESIA
  12. FESOTERODINE [Concomitant]
     Active Substance: FESOTERODINE
  13. ARMOUR THYROID [Concomitant]
     Active Substance: THYROID, PORCINE
  14. PROPOFOL. [Concomitant]
     Active Substance: PROPOFOL
     Indication: ANAESTHESIA
  15. FENTANYL. [Concomitant]
     Active Substance: FENTANYL
     Indication: ANAESTHESIA
  16. GLEOLAN [Suspect]
     Active Substance: AMINOLEVULINIC ACID HYDROCHLORIDE
     Indication: PHOTODYNAMIC DIAGNOSTIC PROCEDURE
     Dates: start: 20191210, end: 20191210
  17. DAPSONE. [Concomitant]
     Active Substance: DAPSONE
  18. ZOLOFT [Concomitant]
     Active Substance: SERTRALINE HYDROCHLORIDE
  19. TEMODAR [Concomitant]
     Active Substance: TEMOZOLOMIDE
  20. CEFAZOLIN [Concomitant]
     Active Substance: CEFAZOLIN
  21. KEPPRA [Concomitant]
     Active Substance: LEVETIRACETAM
     Indication: ANAESTHESIA
  22. ESTRADIOL. [Concomitant]
     Active Substance: ESTRADIOL
  23. KETOTIFEN [Concomitant]
     Active Substance: KETOTIFEN
  24. FENTANYL. [Concomitant]
     Active Substance: FENTANYL
  25. ZOFRAN [Concomitant]
     Active Substance: ONDANSETRON HYDROCHLORIDE
     Indication: ANAESTHESIA
  26. MANNITOL. [Concomitant]
     Active Substance: MANNITOL
     Indication: ANAESTHESIA
  27. FERGON [Concomitant]
     Active Substance: FERROUS GLUCONATE
  28. FLONASE [Concomitant]
     Active Substance: FLUTICASONE PROPIONATE
  29. DHEA [Concomitant]
     Active Substance: PRASTERONE
     Route: 048
  30. MIDAZOLAM HYDROCHLORIDE. [Concomitant]
     Active Substance: MIDAZOLAM HYDROCHLORIDE
  31. ZYRTEC [Concomitant]
     Active Substance: CETIRIZINE HYDROCHLORIDE
  32. ZOFRAN ODT [Concomitant]
     Active Substance: ONDANSETRON HYDROCHLORIDE
     Route: 048
  33. DECADRON [Concomitant]
     Active Substance: DEXAMETHASONE
  34. ROCURONIUM [Concomitant]
     Active Substance: ROCURONIUM BROMIDE
     Indication: ANAESTHESIA
  35. SODIUM CHLORIDE. [Concomitant]
     Active Substance: SODIUM CHLORIDE
     Indication: ANAESTHESIA

REACTIONS (6)
  - Irritability [Recovered/Resolved]
  - Aggression [Recovered/Resolved]
  - Overdose [Recovered/Resolved]
  - Erythema [Recovered/Resolved]
  - Feeling hot [Unknown]
  - Restlessness [Recovered/Resolved]

NARRATIVE: CASE EVENT DATE: 20191210
